FAERS Safety Report 8306151-3 (Version None)
Quarter: 2012Q2

REPORT INFORMATION
  Report Type: 
  Country: None (occurrence: None)
  Receive Date: 20120423
  Receipt Date: 20120412
  Transmission Date: 20120825
  Serious: Yes (Hospitalization, Other)
  Sender: FDA-Public Use
  Company Number: US-ELI_LILLY_AND_COMPANY-US201204002104

PATIENT
  Sex: Female

DRUGS (2)
  1. FORTEO [Suspect]
     Dosage: UNK
     Dates: start: 20111201
  2. FORTEO [Suspect]
     Indication: OSTEOPOROSIS
     Dosage: UNK, UNKNOWN
     Dates: start: 20110101

REACTIONS (9)
  - MALAISE [None]
  - BLOOD PRESSURE DECREASED [None]
  - NAUSEA [None]
  - STRESS [None]
  - VIRAL INFECTION [None]
  - WEIGHT DECREASED [None]
  - FUNGAL INFECTION [None]
  - DEPRESSION [None]
  - BACK PAIN [None]
